FAERS Safety Report 5268260-5 (Version None)
Quarter: 2007Q1

REPORT INFORMATION
  Report Type: 
  Country: None (occurrence: None)
  Receive Date: 20070316
  Receipt Date: 20070316
  Transmission Date: 20070707
  Serious: Yes (Hospitalization)
  Sender: FDA-Public Use
  Company Number: None

PATIENT
  Age: 59 Year
  Sex: Male
  Weight: 69.8 kg

DRUGS (4)
  1. CETUXIMAB [Suspect]
     Indication: COLON CANCER
     Dosage: 450MG  EVERY WEEK  IV
     Route: 042
     Dates: start: 20061109
  2. CETUXIMAB [Suspect]
     Indication: COLON CANCER
     Dosage: 450MG  EVERY WEEK  IV
     Route: 042
     Dates: start: 20061116
  3. CETUXIMAB [Suspect]
     Indication: COLON CANCER
     Dosage: 450MG  EVERY WEEK  IV
     Route: 042
     Dates: start: 20061123
  4. CAPECITABINE [Suspect]
     Indication: COLON CANCER
     Dosage: 1800MG  X14 DAYS  PO
     Route: 048
     Dates: start: 20061109, end: 20061122

REACTIONS (8)
  - BALANITIS [None]
  - CHILLS [None]
  - DIARRHOEA [None]
  - ELECTROLYTE IMBALANCE [None]
  - PYREXIA [None]
  - SKIN REACTION [None]
  - SKIN TOXICITY [None]
  - STAPHYLOCOCCAL INFECTION [None]
